FAERS Safety Report 17116088 (Version 8)
Quarter: 2020Q2

REPORT INFORMATION
  Report Type: Report from Study
  Country: TW (occurrence: TW)
  Receive Date: 20191205
  Receipt Date: 20200520
  Transmission Date: 20200713
  Serious: Yes (Life-Threatening, Hospitalization)
  Sender: FDA-Public Use
  Company Number: NVSC2019TW052252

PATIENT
  Age: 69 Year
  Sex: Male
  Weight: 61.8 kg

DRUGS (45)
  1. PLACEBO [Suspect]
     Active Substance: UNSPECIFIED INGREDIENT
     Indication: NON-SMALL CELL LUNG CANCER
     Dosage: UNK
     Route: 058
     Dates: start: 20190731, end: 20191111
  2. DIPHENHYDRAMINE HCL [Concomitant]
     Active Substance: DIPHENHYDRAMINE HYDROCHLORIDE
     Indication: TRANSFUSION
     Dosage: UNK
     Route: 065
     Dates: start: 20191120, end: 20191120
  3. AMIODARONE HCL [Concomitant]
     Active Substance: AMIODARONE HYDROCHLORIDE
     Indication: ATRIAL FIBRILLATION
     Dosage: UNK
     Route: 065
     Dates: start: 20191127, end: 20191127
  4. KETAMINE HCL [Concomitant]
     Active Substance: KETAMINE HYDROCHLORIDE
     Indication: SEDATION
     Dosage: UNK
     Route: 065
     Dates: start: 20191127, end: 20191127
  5. ALBUMIN [Concomitant]
     Active Substance: ALBUMIN HUMAN
     Indication: NUTRITIONAL SUPPLEMENTATION
     Dosage: UNK
     Route: 065
     Dates: start: 20191127, end: 20191129
  6. NOREPINEPHRINE BITARTRATE. [Concomitant]
     Active Substance: NOREPINEPHRINE BITARTRATE
     Indication: ATRIAL FIBRILLATION
     Dosage: UNK
     Route: 065
     Dates: start: 20191127, end: 20191128
  7. BETHANECHOL CHLORIDE. [Concomitant]
     Active Substance: BETHANECHOL CHLORIDE
     Indication: DIARRHOEA
     Dosage: UNK
     Route: 065
     Dates: start: 20191206, end: 20191208
  8. ESOMEPRAZOLE. [Concomitant]
     Active Substance: ESOMEPRAZOLE MAGNESIUM
     Indication: PREMEDICATION
     Dosage: UNK
     Route: 065
     Dates: start: 20191126, end: 20191128
  9. LACTATED RINGERS SOLUTION [Concomitant]
     Active Substance: CALCIUM CHLORIDE\POTASSIUM CHLORIDE\SODIUM CHLORIDE\SODIUM LACTATE
     Indication: PRODUCT USED FOR UNKNOWN INDICATION
     Dosage: UNK
     Route: 065
     Dates: start: 20191127, end: 20191128
  10. SUCCINYLCHOLINE CHLORIDE. [Concomitant]
     Active Substance: SUCCINYLCHOLINE CHLORIDE
     Indication: SEDATION
     Dosage: UNK
     Route: 065
     Dates: start: 20191127, end: 20191127
  11. ALBUMIN [Concomitant]
     Active Substance: ALBUMIN HUMAN
     Dosage: UNK
     Route: 065
     Dates: start: 20191203, end: 20191205
  12. DIGOXIN. [Concomitant]
     Active Substance: DIGOXIN
     Indication: ATRIAL FIBRILLATION
     Dosage: UNK
     Route: 065
     Dates: start: 20191130, end: 20191130
  13. DEXAMETHASONE. [Concomitant]
     Active Substance: DEXAMETHASONE
     Indication: PREMEDICATION
     Dosage: UNK
     Route: 065
     Dates: start: 20191111, end: 20191113
  14. DEXTROSE. [Concomitant]
     Active Substance: DEXTROSE
     Indication: NUTRITIONAL SUPPLEMENTATION
     Dosage: UNK
     Route: 065
     Dates: start: 20191127, end: 20191127
  15. DIPHENHYDRAMINE HCL [Concomitant]
     Active Substance: DIPHENHYDRAMINE HYDROCHLORIDE
     Dosage: UNK
     Route: 065
     Dates: start: 20191129, end: 20191129
  16. ACETAMINOPHEN. [Concomitant]
     Active Substance: ACETAMINOPHEN
     Indication: HEADACHE
     Dosage: UNK
     Route: 065
     Dates: start: 20191104, end: 20191118
  17. ACETAMINOPHEN. [Concomitant]
     Active Substance: ACETAMINOPHEN
     Indication: TRANSFUSION
     Dosage: UNK
     Route: 065
     Dates: start: 20191121, end: 20191121
  18. MIDAZOLAM HCL [Concomitant]
     Active Substance: MIDAZOLAM HYDROCHLORIDE
     Indication: SEDATION
     Dosage: UNK
     Route: 065
     Dates: start: 20191127, end: 20191127
  19. FERRIC HYDROXIDE POLYMALTOSE COMPLEX [Concomitant]
     Active Substance: IRON POLYMALTOSE
     Indication: IRON DEFICIENCY ANAEMIA
     Dosage: UNK
     Route: 065
     Dates: start: 20190820, end: 20191125
  20. FUROSEMIDE. [Concomitant]
     Active Substance: FUROSEMIDE
     Indication: DIURETIC THERAPY
     Dosage: UNK
     Route: 065
     Dates: start: 20191130, end: 20191130
  21. PEMBROLIZUMAB. [Suspect]
     Active Substance: PEMBROLIZUMAB
     Indication: NON-SMALL CELL LUNG CANCER
     Dosage: 200 MG, Q3W
     Route: 042
     Dates: start: 20190731, end: 20191111
  22. ESOMEPRAZOLE. [Concomitant]
     Active Substance: ESOMEPRAZOLE MAGNESIUM
     Indication: STEROID THERAPY
     Dosage: UNK
     Route: 065
     Dates: start: 20191129
  23. AMIODARONE HCL [Concomitant]
     Active Substance: AMIODARONE HYDROCHLORIDE
     Indication: HYPOTENSION
     Dosage: UNK
     Route: 065
     Dates: start: 20191201, end: 20191201
  24. ESOMEPRAZOLE MAGNESIUM. [Concomitant]
     Active Substance: ESOMEPRAZOLE MAGNESIUM
     Indication: PREMEDICATION
     Dosage: UNK
     Route: 065
     Dates: start: 20190820, end: 20191125
  25. METOCLOPRAMIDE HCL [Concomitant]
     Active Substance: METOCLOPRAMIDE HYDROCHLORIDE
     Indication: PREMEDICATION
     Dosage: UNK
     Route: 065
     Dates: start: 20191127, end: 20191129
  26. COMPARATOR PEMETREXED [Suspect]
     Active Substance: PEMETREXED DISODIUM
     Indication: NON-SMALL CELL LUNG CANCER
     Dosage: 830 MG, Q3W
     Route: 042
     Dates: start: 20190731, end: 20191111
  27. CHLORHEXIDINE GLUCONATE. [Concomitant]
     Active Substance: CHLORHEXIDINE GLUCONATE
     Indication: WOUND
     Dosage: UNK
     Route: 065
     Dates: start: 20191127, end: 20191204
  28. CHLORHEXIDINE GLUCONATE. [Concomitant]
     Active Substance: CHLORHEXIDINE GLUCONATE
     Indication: INFECTION PROPHYLAXIS
     Dosage: UNK
     Route: 065
     Dates: start: 20191209
  29. ESOMEPRAZOLE MAGNESIUM. [Concomitant]
     Active Substance: ESOMEPRAZOLE MAGNESIUM
     Indication: STEROID THERAPY
     Dosage: UNK
     Route: 065
     Dates: start: 20191129
  30. MAGNESIUM OXIDE. [Concomitant]
     Active Substance: MAGNESIUM OXIDE
     Indication: CONSTIPATION
     Dosage: UNK
     Route: 065
     Dates: start: 20190915, end: 20191110
  31. STRESSTAB [Concomitant]
     Indication: PREMEDICATION
     Dosage: UNK
     Route: 065
     Dates: start: 20190724, end: 20191125
  32. CALCIUM POLYSTYRENE SULFONATE [Concomitant]
     Active Substance: CALCIUM POLYSTYRENE SULFONATE
     Indication: HYPERKALAEMIA
     Dosage: UNK
     Route: 065
     Dates: start: 20191205, end: 20191208
  33. MORPHINE HCL [Concomitant]
     Active Substance: MORPHINE HYDROCHLORIDE
     Indication: SEDATION
     Dosage: UNK
     Route: 065
     Dates: start: 20191208, end: 20191208
  34. PROCHLORPERAZINE MALEATE. [Concomitant]
     Active Substance: PROCHLORPERAZINE MALEATE
     Indication: PREMEDICATION
     Dosage: UNK
     Route: 065
     Dates: start: 20191111, end: 20191113
  35. COMPARATOR CARBOPLATIN [Suspect]
     Active Substance: CARBOPLATIN
     Indication: NON-SMALL CELL LUNG CANCER
     Dosage: 445 MG, Q3W
     Route: 042
     Dates: start: 20190731, end: 20191001
  36. DEXTROMETHORPHAN HBR(REGROW) [Concomitant]
     Indication: COUGH
     Dosage: UNK
     Route: 065
     Dates: start: 20190724, end: 20191125
  37. MIDAZOLAM HCL [Concomitant]
     Active Substance: MIDAZOLAM HYDROCHLORIDE
     Dosage: UNK
     Route: 065
     Dates: start: 20191208, end: 20191209
  38. FENTANYL CITRATE. [Concomitant]
     Active Substance: FENTANYL CITRATE
     Indication: SEDATION
     Dosage: UNK
     Route: 065
     Dates: start: 20191127, end: 20191202
  39. BISOPROLOL FUMARATE. [Concomitant]
     Active Substance: BISOPROLOL FUMARATE
     Indication: ATRIAL FIBRILLATION
     Dosage: UNK
     Route: 065
     Dates: start: 20191128, end: 20191208
  40. ALPRALINE [Concomitant]
     Active Substance: ALPRAZOLAM
     Indication: ANXIETY
     Dosage: UNK
     Route: 065
     Dates: start: 20191111, end: 20191125
  41. MAGNESIUM SULFATE. [Concomitant]
     Active Substance: MAGNESIUM SULFATE
     Indication: SEDATION
     Dosage: UNK
     Route: 065
     Dates: start: 20191127, end: 20191127
  42. MAGNESIUM SULFATE. [Concomitant]
     Active Substance: MAGNESIUM SULFATE
     Dosage: UNK
     Route: 065
     Dates: start: 20191209, end: 20191209
  43. FENTANYL CITRATE. [Concomitant]
     Active Substance: FENTANYL CITRATE
     Dosage: UNK
     Route: 065
     Dates: start: 20191209
  44. EPINEPHRINE HCL [Concomitant]
     Active Substance: EPINEPHRINE
     Indication: SEDATION
     Dosage: UNK
     Route: 065
     Dates: start: 20191209, end: 20191209
  45. REGROW [Concomitant]
     Indication: COUGH
     Dosage: UNK
     Route: 065
     Dates: start: 20190724, end: 20191125

REACTIONS (3)
  - Pneumonia [Not Recovered/Not Resolved]
  - Pneumonitis [Recovered/Resolved with Sequelae]
  - Pneumonitis [Not Recovered/Not Resolved]

NARRATIVE: CASE EVENT DATE: 20191125
